FAERS Safety Report 4865130-9 (Version None)
Quarter: 2005Q4

REPORT INFORMATION
  Report Type: 
  Country: None (occurrence: None)
  Receive Date: 20051221
  Receipt Date: 20051221
  Transmission Date: 20060501
  Serious: Yes (Other)
  Sender: FDA-Public Use
  Company Number: None

PATIENT
  Age: 27 Year
  Sex: Female
  Weight: 102 kg

DRUGS (4)
  1. RISPERIDONE [Suspect]
     Indication: BIPOLAR DISORDER
     Dosage: ONE DOSE
  2. GABAPENTIN [Suspect]
     Indication: BIPOLAR DISORDER
     Dosage: ONE DOSE
  3. DEPAKOTE [Concomitant]
  4. KLONOPIN [Concomitant]

REACTIONS (5)
  - LOCALISED OEDEMA [None]
  - OEDEMA PERIPHERAL [None]
  - PHARYNGEAL OEDEMA [None]
  - PRURITUS [None]
  - SWELLING FACE [None]
